FAERS Safety Report 9607571 (Version 1)
Quarter: 2013Q4

REPORT INFORMATION
  Report Type: Spontaneous
  Country: US (occurrence: None)
  Receive Date: 20131008
  Receipt Date: 20131008
  Transmission Date: 20140711
  Serious: Yes (Other)
  Sender: FDA-Public Use
  Company Number: None

PATIENT
  Age: 62 Year
  Sex: Female
  Weight: 61.24 kg

DRUGS (1)
  1. XARELTO 20 MG [Suspect]
     Indication: CARDIAC ABLATION
     Route: 048
     Dates: start: 20130530, end: 20130710

REACTIONS (4)
  - Mouth ulceration [None]
  - Oral discomfort [None]
  - Oral discomfort [None]
  - Throat tightness [None]
